FAERS Safety Report 7480687-X (Version None)
Quarter: 2011Q2

REPORT INFORMATION
  Report Type: 
  Country: None (occurrence: None)
  Receive Date: 20110516
  Receipt Date: 20110124
  Transmission Date: 20111010
  Serious: Yes (Hospitalization, Other)
  Sender: FDA-Public Use
  Company Number: US-BAYER-201030550NA

PATIENT
  Age: 47 Year
  Sex: Female
  Weight: 95.238 kg

DRUGS (10)
  1. YAZ [Suspect]
     Indication: PREMENSTRUAL SYNDROME
  2. ACETAMINOPHEN [Concomitant]
  3. NITROFURANT MACRO [Concomitant]
  4. MIGRAINE MEDICATIONS [Concomitant]
  5. YAZ [Suspect]
     Indication: ACNE
     Dosage: UNK
     Route: 048
     Dates: start: 20071201, end: 20080501
  6. BREATHING MEDICATION [Concomitant]
  7. IBUPROFEN (ADVIL) [Concomitant]
  8. ANTIBIOTICS [Concomitant]
  9. NEXIUM [Concomitant]
  10. ALEVE [Concomitant]

REACTIONS (5)
  - CHOLECYSTECTOMY [None]
  - INJURY [None]
  - BILIARY DYSKINESIA [None]
  - CHOLECYSTITIS CHRONIC [None]
  - PAIN [None]
